FAERS Safety Report 24913901 (Version 1)
Quarter: 2025Q1

REPORT INFORMATION
  Report Type: Spontaneous
  Country: US (occurrence: US)
  Receive Date: 20250202
  Receipt Date: 20250202
  Transmission Date: 20250408
  Serious: No
  Sender: AMGEN
  Company Number: US-AMGEN-USASP2025015892

PATIENT

DRUGS (16)
  1. ADALIMUMAB [Suspect]
     Active Substance: ADALIMUMAB
     Indication: Psoriasis
     Route: 065
  2. ETANERCEPT [Suspect]
     Active Substance: ETANERCEPT
     Indication: Psoriasis
     Route: 065
  3. USTEKINUMAB [Suspect]
     Active Substance: USTEKINUMAB
     Indication: Psoriasis
     Route: 065
  4. APREMILAST [Suspect]
     Active Substance: APREMILAST
     Indication: Psoriasis
     Route: 065
  5. INFLIXIMAB [Suspect]
     Active Substance: INFLIXIMAB
     Indication: Psoriasis
     Route: 065
  6. DEUCRAVACITINIB [Concomitant]
     Active Substance: DEUCRAVACITINIB
     Indication: Psoriasis
     Route: 065
  7. GUSELKUMAB [Concomitant]
     Active Substance: GUSELKUMAB
     Indication: Psoriasis
     Route: 065
  8. RISANKIZUMAB [Concomitant]
     Active Substance: RISANKIZUMAB
     Indication: Psoriasis
     Route: 065
  9. METHOTREXATE [Concomitant]
     Active Substance: METHOTREXATE
     Indication: Psoriasis
  10. IXEKIZUMAB [Concomitant]
     Active Substance: IXEKIZUMAB
     Indication: Psoriasis
     Route: 065
  11. TILDRAKIZUMAB [Concomitant]
     Active Substance: TILDRAKIZUMAB
     Indication: Psoriasis
     Route: 065
  12. CERTOLIZUMAB PEGOL [Concomitant]
     Active Substance: CERTOLIZUMAB PEGOL
     Indication: Psoriasis
     Route: 065
  13. ACITRETIN [Concomitant]
     Active Substance: ACITRETIN
     Indication: Psoriasis
     Route: 065
  14. BRODALUMAB [Concomitant]
     Active Substance: BRODALUMAB
     Indication: Psoriasis
     Route: 065
  15. CYCLOSPORINE [Concomitant]
     Active Substance: CYCLOSPORINE
     Indication: Psoriasis
     Route: 065
  16. GOLIMUMAB [Concomitant]
     Active Substance: GOLIMUMAB
     Indication: Psoriasis
     Route: 065

REACTIONS (1)
  - Treatment failure [Unknown]
